FAERS Safety Report 7859903-8 (Version None)
Quarter: 2011Q4

REPORT INFORMATION
  Report Type: 
  Country: None (occurrence: None)
  Receive Date: 20111027
  Receipt Date: 20111024
  Transmission Date: 20120403
  Serious: Yes (Other)
  Sender: FDA-Public Use
  Company Number: ES-PFIZER INC-2011202515

PATIENT
  Age: 62 Year
  Sex: Male

DRUGS (1)
  1. LYRICA [Suspect]
     Dosage: 150 MG, 1X/DAY
     Route: 048
     Dates: start: 20100322, end: 20110601

REACTIONS (3)
  - ANGINA PECTORIS [None]
  - OEDEMA PERIPHERAL [None]
  - CONDITION AGGRAVATED [None]
